FAERS Safety Report 7223580-X (Version None)
Quarter: 2011Q1

REPORT INFORMATION
  Report Type: 
  Country: None (occurrence: None)
  Receive Date: 20110112
  Receipt Date: 20100902
  Transmission Date: 20110831
  Serious: No
  Sender: FDA-Public Use
  Company Number: US-ALLERGAN-1011397US

PATIENT
  Sex: Female

DRUGS (1)
  1. RESTASIS [Suspect]
     Indication: LACRIMAL DISORDER
     Dosage: UNK
     Route: 047
     Dates: start: 20090101

REACTIONS (4)
  - FOREIGN BODY SENSATION IN EYES [None]
  - PHOTOSENSITIVITY REACTION [None]
  - VISION BLURRED [None]
  - EYE IRRITATION [None]
